FAERS Safety Report 16141162 (Version 1)
Quarter: 2019Q2

REPORT INFORMATION
  Report Type: Spontaneous
  Country: US (occurrence: US)
  Receive Date: 20190401
  Receipt Date: 20190401
  Transmission Date: 20190711
  Serious: No
  Sender: FDA-Public Use
  Company Number: US-PFIZER INC-2018427307

PATIENT
  Age: 87 Year
  Sex: Female
  Weight: 49.89 kg

DRUGS (5)
  1. EXEMESTANE. [Suspect]
     Active Substance: EXEMESTANE
     Indication: HORMONE THERAPY
     Dosage: 25 MG, 1X/DAY
     Route: 048
     Dates: start: 20180929
  2. IBRANCE [Suspect]
     Active Substance: PALBOCICLIB
     Indication: BREAST CANCER FEMALE
     Dosage: 100 MG, CYCLIC; [ONCE A DAY BY MOUTH ONLY TAKE FOR 21 DAYS THEN STOP FOR 7 DAYS AND START AGAIN]
     Route: 048
     Dates: start: 20180929
  3. LEVOTHYROXINE. [Concomitant]
     Active Substance: LEVOTHYROXINE
     Dosage: 0.05 MG, 1X/DAY; [ONCE IN MORING]
  4. EFFEXOR [Concomitant]
     Active Substance: VENLAFAXINE HYDROCHLORIDE
     Indication: DEPRESSION
     Dosage: UNK UNK, DAILY  [150 MG TAKE ONE CAPSULE BY MOUTH EVERY MORNING AND AT NOON THEN WITH A75 MG DINNER]
     Route: 048
  5. ABILIFY [Concomitant]
     Active Substance: ARIPIPRAZOLE
     Indication: THERAPEUTIC PRODUCT EFFECT INCREASED
     Dosage: 2 MG, 1X/DAY; [ONE TABLET AT NIGHT]

REACTIONS (3)
  - Constipation [Unknown]
  - Diarrhoea [Unknown]
  - Speech disorder [Unknown]

NARRATIVE: CASE EVENT DATE: 201903
